FAERS Safety Report 5591265-1 (Version None)
Quarter: 2008Q1

REPORT INFORMATION
  Report Type: 
  Country: None (occurrence: None)
  Receive Date: 20080115
  Receipt Date: 20080109
  Transmission Date: 20080703
  Serious: Yes (Hospitalization)
  Sender: FDA-Public Use
  Company Number: FR-AVENTIS-200810091FR

PATIENT
  Age: 20 Year
  Sex: Male

DRUGS (2)
  1. RODOGYL [Suspect]
     Indication: WISDOM TEETH REMOVAL
     Route: 048
     Dates: start: 20071029
  2. NUROFEN [Suspect]
     Route: 048
     Dates: end: 20071028

REACTIONS (1)
  - CELLULITIS [None]
